FAERS Safety Report 8275094-6 (Version None)
Quarter: 2012Q2

REPORT INFORMATION
  Report Type: 
  Country: None (occurrence: None)
  Receive Date: 20120411
  Receipt Date: 20120406
  Transmission Date: 20120825
  Serious: Yes (Death)
  Sender: FDA-Public Use
  Company Number: JP-PFIZER INC-2012086857

PATIENT
  Age: 59 Year
  Sex: Female

DRUGS (4)
  1. TEMSIROLIMUS [Suspect]
     Dosage: 20 MG, WEEKLY
     Route: 042
     Dates: start: 20111122, end: 20111227
  2. TEMSIROLIMUS [Suspect]
     Dosage: 25 MG, WEEKLY
     Route: 042
     Dates: start: 20111011, end: 20111101
  3. TEMSIROLIMUS [Suspect]
     Indication: RENAL CELL CARCINOMA
     Dosage: UNK
     Route: 042
  4. TEMSIROLIMUS [Suspect]
     Dosage: 15 MG, WEEKLY
     Route: 042
     Dates: start: 20120124, end: 20120207

REACTIONS (1)
  - DEATH [None]
